FAERS Safety Report 21399131 (Version 1)
Quarter: 2022Q4

REPORT INFORMATION
  Report Type: Spontaneous
  Country: CA (occurrence: CA)
  Receive Date: 20221001
  Receipt Date: 20221001
  Transmission Date: 20230113
  Serious: Yes (Hospitalization, Other)
  Sender: FDA-Public Use
  Company Number: CA-AUROBINDO-AUR-APL-2022-040206

PATIENT
  Age: 49 Year
  Sex: Male

DRUGS (13)
  1. PERINDOPRIL [Suspect]
     Active Substance: PERINDOPRIL
     Indication: Product used for unknown indication
     Dosage: 1 DOSAGE FORM, ONCE A DAY
     Route: 048
  2. DICLOFENAC [Suspect]
     Active Substance: DICLOFENAC
     Indication: Product used for unknown indication
     Dosage: 1 DOSAGE FORM, ONCE A DAY
     Route: 048
  3. BREO ELLIPTA [Concomitant]
     Active Substance: FLUTICASONE FUROATE\VILANTEROL TRIFENATATE
     Indication: Product used for unknown indication
     Dosage: 1 DOSAGE FORM, ONCE A DAY
  4. HYDROCODONE [Concomitant]
     Active Substance: HYDROCODONE
     Indication: Premenstrual syndrome
     Dosage: 1 DOSAGE FORM, ONCE A DAY
     Route: 048
  5. NUCALA [Concomitant]
     Active Substance: MEPOLIZUMAB
     Indication: Product used for unknown indication
     Dosage: UNK
     Route: 065
  6. OXYCODONE [Concomitant]
     Active Substance: OXYCODONE
     Indication: Premenstrual syndrome
     Dosage: 1 DOSAGE FORM, TWO TIMES A DAY
     Route: 048
  7. PREDNISONE [Concomitant]
     Active Substance: PREDNISONE
     Indication: Product used for unknown indication
     Dosage: 1 DOSAGE FORM, ONCE A DAY
     Route: 048
  8. PREGABALIN [Concomitant]
     Active Substance: PREGABALIN
     Indication: Premenstrual syndrome
     Dosage: 1 DOSAGE FORM, TWO TIMES A DAY
     Route: 048
  9. SINGULAIR [Concomitant]
     Active Substance: MONTELUKAST SODIUM
     Indication: Product used for unknown indication
     Dosage: 1 DOSAGE FORM, ONCE A DAY
     Route: 048
  10. TESTOSTERONE [Concomitant]
     Active Substance: TESTOSTERONE
     Indication: Product used for unknown indication
     Dosage: 1 DOSAGE FORM, ONCE A DAY
     Route: 061
  11. TRAMADOL [Concomitant]
     Active Substance: TRAMADOL
     Indication: Apolipoprotein B
     Dosage: 1 DOSAGE FORM, FOUR TIMES/DAY
     Route: 048
  12. VIBERZI [Concomitant]
     Active Substance: ELUXADOLINE
     Indication: Product used for unknown indication
     Dosage: 1 DOSAGE FORM, TWO TIMES A DAY
     Route: 048
  13. ZOPICLONE [Concomitant]
     Active Substance: ZOPICLONE
     Indication: Product used for unknown indication
     Dosage: 1 DOSAGE FORM, ONCE A DAY
     Route: 048

REACTIONS (10)
  - Asthma [Unknown]
  - Chest discomfort [Unknown]
  - Nasal polyps [Unknown]
  - Chronic spontaneous urticaria [Unknown]
  - Dyspnoea [Unknown]
  - Haemoptysis [Unknown]
  - Intervertebral disc protrusion [Unknown]
  - Pneumonia bacterial [Unknown]
  - Sleep disorder [Unknown]
  - Wheezing [Unknown]
